FAERS Safety Report 17878975 (Version 2)
Quarter: 2020Q2

REPORT INFORMATION
  Report Type: Spontaneous
  Country: DE (occurrence: DE)
  Receive Date: 20200610
  Receipt Date: 20200624
  Transmission Date: 20200714
  Serious: Yes (Other)
  Sender: FDA-Public Use
  Company Number: DE-GW PHARMA-202006DEGW02016

PATIENT

DRUGS (8)
  1. OXCARBAZEPINE. [Suspect]
     Active Substance: OXCARBAZEPINE
     Indication: LENNOX-GASTAUT SYNDROME
     Dosage: 2550 MILLIGRAM, QD
     Route: 065
     Dates: end: 201905
  2. EPIDIOLEX [Suspect]
     Active Substance: CANNABIDIOL
     Dosage: 50 MILLIGRAM, QD
     Route: 048
     Dates: start: 201905
  3. EPIDIOLEX [Suspect]
     Active Substance: CANNABIDIOL
     Dosage: 120 MILLIGRAM, QD
     Route: 048
     Dates: start: 201903, end: 201905
  4. OXCARBAZEPINE. [Suspect]
     Active Substance: OXCARBAZEPINE
     Dosage: 1800 MILLIGRAM, QD
     Route: 065
     Dates: start: 201905
  5. EPIDIOLEX [Suspect]
     Active Substance: CANNABIDIOL
     Indication: LENNOX-GASTAUT SYNDROME
     Dosage: 100 MILLIGRAM, QD
     Route: 048
     Dates: start: 201903, end: 201905
  6. CLOBAZAM. [Suspect]
     Active Substance: CLOBAZAM
     Indication: LENNOX-GASTAUT SYNDROME
     Dosage: 2.5 MILLIGRAM, QD
     Route: 065
  7. BRIVARACETAM [Suspect]
     Active Substance: BRIVARACETAM
     Indication: PRODUCT USED FOR UNKNOWN INDICATION
     Dosage: 50 MILLIGRAM, QD
     Route: 065
  8. VALPROIC ACID. [Concomitant]
     Active Substance: VALPROIC ACID
     Indication: LENNOX-GASTAUT SYNDROME
     Dosage: 1500 MILLIGRAM, QD
     Route: 065

REACTIONS (8)
  - Aspartate aminotransferase increased [Recovered/Resolved]
  - Gamma-glutamyltransferase increased [Recovered/Resolved]
  - Anticonvulsant drug level increased [Recovered/Resolved]
  - Weight decreased [Not Recovered/Not Resolved]
  - Vomiting [Recovered/Resolved]
  - Alanine aminotransferase increased [Recovered/Resolved]
  - Nausea [Recovered/Resolved]
  - Therapeutic response unexpected [Unknown]

NARRATIVE: CASE EVENT DATE: 2019
